FAERS Safety Report 4456214-8 (Version None)
Quarter: 2004Q3

REPORT INFORMATION
  Report Type: 
  Country: None (occurrence: None)
  Receive Date: 20040920
  Receipt Date: 20040907
  Transmission Date: 20050211
  Serious: Yes (Hospitalization)
  Sender: FDA-Public Use
  Company Number: 04P-167-0268283-00

PATIENT
  Age: 29 Year
  Sex: Male

DRUGS (5)
  1. HUMIRA [Suspect]
     Indication: PYODERMA GANGRENOSUM
     Dosage: 40 MG, 1 IN 2 WK, SUBCUTANEOUS
     Route: 058
     Dates: start: 20040212, end: 20040101
  2. RIFAMPICIN [Concomitant]
  3. ISONIAZID [Concomitant]
  4. PREDNISOLONE [Concomitant]
  5. TACROLIMUS [Concomitant]

REACTIONS (3)
  - PYODERMA GANGRENOSUM [None]
  - TREATMENT NONCOMPLIANCE [None]
  - TUBERCULOSIS [None]
